FAERS Safety Report 11428942 (Version 1)
Quarter: 2015Q3

REPORT INFORMATION
  Report Type: Spontaneous
  Country: US (occurrence: None)
  Receive Date: 20150827
  Receipt Date: 20150827
  Transmission Date: 20151125
  Serious: Yes (Other)
  Sender: FDA-Public Use
  Company Number: None

PATIENT
  Age: 61 Year
  Sex: Male
  Weight: 74.84 kg

DRUGS (6)
  1. MULTIVITAMIN [Concomitant]
     Active Substance: VITAMINS
  2. MAGNESIUM [Concomitant]
     Active Substance: MAGNESIUM
  3. CLONAZEPAM. [Concomitant]
     Active Substance: CLONAZEPAM
  4. MELATONIN [Concomitant]
     Active Substance: MELATONIN
  5. DOXEPIN [Concomitant]
     Active Substance: DOXEPIN
  6. BELSOMRA [Suspect]
     Active Substance: SUVOREXANT
     Indication: INSOMNIA
     Dosage: 1 PILL AT BEDTIME?ONE NIGHT
     Route: 048

REACTIONS (10)
  - Feeling abnormal [None]
  - Apnoea [None]
  - Muscle spasms [None]
  - Headache [None]
  - Insomnia [None]
  - Hallucination [None]
  - No therapeutic response [None]
  - Myalgia [None]
  - Fatigue [None]
  - Muscle contractions involuntary [None]

NARRATIVE: CASE EVENT DATE: 20150821
